FAERS Safety Report 6666353-9 (Version None)
Quarter: 2010Q2

REPORT INFORMATION
  Report Type: 
  Country: None (occurrence: None)
  Receive Date: 20100402
  Receipt Date: 20100324
  Transmission Date: 20101027
  Serious: Yes (Hospitalization, Other)
  Sender: FDA-Public Use
  Company Number: GB-B.I. PHARMACEUTICALS,INC./RIDGEFIELD-2010-DE-01866GD

PATIENT
  Sex: Male

DRUGS (5)
  1. PRAMIPEXOLE DIHYDROCHLORIDE [Suspect]
     Indication: PARKINSON'S DISEASE
     Dosage: WITHIN 3 YEARS DOSE INCREASED FROM 3 MG/DAY TO 6 MG/DAY BY THE PATIENT
     Dates: start: 20020101
  2. AMANTADINE HCL [Suspect]
     Indication: PARKINSON'S DISEASE
     Dosage: DOSE INCREASED FROM 300 TO 500 MG/DAY BY THE PATIENT
  3. AMANTADINE HCL [Suspect]
     Indication: DYSKINESIA
  4. LEVODOPA [Suspect]
     Indication: PARKINSON'S DISEASE
     Dosage: AFTER DOSE REDUCTION TO 200 MG DOSE SELF-ESCALATED BACK UP TO 600 MG/DAY
  5. LEVODOPA [Suspect]
     Dosage: DOSE SELF-ESCALATED TO OVER 800 MG/DAY

REACTIONS (13)
  - ABNORMAL BEHAVIOUR [None]
  - ANXIETY [None]
  - COMPULSIVE SHOPPING [None]
  - CYCLOTHYMIC DISORDER [None]
  - DEPRESSED MOOD [None]
  - DOPAMINE DYSREGULATION SYNDROME [None]
  - DYSKINESIA [None]
  - ECONOMIC PROBLEM [None]
  - EXCESSIVE EXERCISE [None]
  - IMPULSE-CONTROL DISORDER [None]
  - LEGAL PROBLEM [None]
  - PATHOLOGICAL GAMBLING [None]
  - STEREOTYPY [None]
